FAERS Safety Report 12971090 (Version 2)
Quarter: 2016Q4

REPORT INFORMATION
  Report Type: Spontaneous
  Country: US (occurrence: US)
  Receive Date: 20161123
  Receipt Date: 20161128
  Transmission Date: 20170207
  Serious: No
  Sender: FDA-Public Use
  Company Number: US-JAZZ-2016-US-019042

PATIENT
  Age: 33 Year
  Sex: Female

DRUGS (9)
  1. XYREM [Suspect]
     Active Substance: SODIUM OXYBATE
     Dosage: 2.25 G, QD
     Route: 048
     Dates: start: 201609, end: 201609
  2. VIIBRYD [Concomitant]
     Active Substance: VILAZODONE HYDROCHLORIDE
  3. BUSPIRONE HCL [Concomitant]
     Active Substance: BUSPIRONE HYDROCHLORIDE
  4. XYREM [Suspect]
     Active Substance: SODIUM OXYBATE
     Indication: NARCOLEPSY
     Dosage: 2.25 G, BID
     Route: 048
     Dates: start: 201609, end: 201609
  5. ADVIL (MEFENAMIC ACID) [Concomitant]
     Active Substance: MEFENAMIC ACID
  6. NEUPRO [Concomitant]
     Active Substance: ROTIGOTINE
  7. XYREM [Suspect]
     Active Substance: SODIUM OXYBATE
     Dosage: 2.25 G, BID
     Route: 048
     Dates: start: 201609
  8. SEROQUEL [Concomitant]
     Active Substance: QUETIAPINE FUMARATE
  9. PRAZOSIN [Concomitant]
     Active Substance: PRAZOSIN

REACTIONS (3)
  - Wrong technique in product usage process [Unknown]
  - Hyperhidrosis [Unknown]
  - Tremor [Unknown]

NARRATIVE: CASE EVENT DATE: 201609
